FAERS Safety Report 12783152 (Version 1)
Quarter: 2016Q3

REPORT INFORMATION
  Report Type: Spontaneous
  Country: US (occurrence: US)
  Receive Date: 20160927
  Receipt Date: 20160927
  Transmission Date: 20161109
  Serious: Yes (Other)
  Sender: FDA-Public Use
  Company Number: US-BEH-PAGL/05/05/USA

PATIENT
  Age: 60 Year
  Sex: Male
  Weight: 57 kg

DRUGS (2)
  1. PANGLOBULIN NF [Suspect]
     Active Substance: HUMAN IMMUNOGLOBULIN G
     Indication: FOCAL SEGMENTAL GLOMERULOSCLEROSIS
     Route: 042
     Dates: start: 20050218, end: 20050218
  2. BENADRYL [Concomitant]
     Active Substance: DIPHENHYDRAMINE HYDROCHLORIDE

REACTIONS (4)
  - Dyspnoea [Recovered/Resolved]
  - Hypotension [Unknown]
  - Hypoxia [Unknown]
  - Nausea [Unknown]

NARRATIVE: CASE EVENT DATE: 20050218
